FAERS Safety Report 14168495 (Version 3)
Quarter: 2018Q1

REPORT INFORMATION
  Report Type: Spontaneous
  Country: NL (occurrence: NL)
  Receive Date: 20171108
  Receipt Date: 20180207
  Transmission Date: 20180508
  Serious: Yes (Hospitalization)
  Sender: FDA-Public Use
  Company Number: NL-SHIRE-NL201726593

PATIENT

DRUGS (3)
  1. CUVITRU [Suspect]
     Active Substance: HUMAN IMMUNOGLOBULIN G
     Dosage: 40 ML, UNK
     Route: 042
     Dates: start: 20171019
  2. SUBCUVIA [Concomitant]
     Active Substance: HUMAN IMMUNOGLOBULIN G
  3. CUVITRU [Suspect]
     Active Substance: HUMAN IMMUNOGLOBULIN G
     Indication: IMMUNODEFICIENCY
     Dosage: 16 G, 2X A WEEK
     Route: 065
     Dates: start: 20171010

REACTIONS (7)
  - Abdominal discomfort [Not Recovered/Not Resolved]
  - Blood pressure decreased [Unknown]
  - Pyrexia [Not Recovered/Not Resolved]
  - Malaise [Unknown]
  - Myalgia [Not Recovered/Not Resolved]
  - Influenza like illness [Not Recovered/Not Resolved]
  - Headache [Not Recovered/Not Resolved]

NARRATIVE: CASE EVENT DATE: 20171012
